FAERS Safety Report 9323736 (Version 1)
Quarter: 2013Q2

REPORT INFORMATION
  Report Type: Report from Study
  Country: US (occurrence: US)
  Receive Date: 20130603
  Receipt Date: 20130603
  Transmission Date: 20140414
  Serious: Yes (Death)
  Sender: FDA-Public Use
  Company Number: PHEH2013US011942

PATIENT
  Age: 64 Year
  Sex: Male

DRUGS (1)
  1. AFINITOR [Suspect]
     Indication: RENAL CELL CARCINOMA
     Dosage: 1 DF, (1 TABLET BY MOUTH EVERY DAY)
     Route: 048
     Dates: start: 20120611, end: 20130411

REACTIONS (1)
  - Death [Fatal]
